FAERS Safety Report 18152770 (Version 17)
Quarter: 2021Q3

REPORT INFORMATION
  Report Type: Spontaneous
  Country: US (occurrence: US)
  Receive Date: 20200814
  Receipt Date: 20210922
  Transmission Date: 20211014
  Serious: Yes (Other)
  Sender: FDA-Public Use
  Company Number: US-DSJP-DSU-2020-123077

PATIENT
  Age: 56 Year
  Sex: Female
  Weight: 25.31 kg

DRUGS (3)
  1. ENHERTU [Suspect]
     Active Substance: FAM-TRASTUZUMAB DERUXTECAN-NXKI
     Indication: HER2 POSITIVE BREAST CANCER
     Dosage: UNK
     Route: 042
     Dates: start: 202008
  2. ENHERTU [Suspect]
     Active Substance: FAM-TRASTUZUMAB DERUXTECAN-NXKI
     Indication: BREAST CANCER METASTATIC
     Dosage: UNK
     Route: 042
  3. DEXAMETHASONE                      /00016002/ [Concomitant]
     Active Substance: DEXAMETHASONE SODIUM PHOSPHATE
     Indication: PRODUCT USED FOR UNKNOWN INDICATION
     Dosage: UNK
     Route: 065

REACTIONS (18)
  - Alopecia [Not Recovered/Not Resolved]
  - Hypersensitivity [Unknown]
  - Product dose omission issue [Unknown]
  - Pyrexia [Recovered/Resolved]
  - Nausea [Not Recovered/Not Resolved]
  - Fatigue [Unknown]
  - Polycythaemia [Unknown]
  - Headache [Unknown]
  - Insomnia [Recovered/Resolved]
  - Lymphadenopathy [Unknown]
  - Weight decreased [Recovered/Resolved]
  - Haemoglobin increased [Not Recovered/Not Resolved]
  - Body mass index decreased [Unknown]
  - Somnolence [Unknown]
  - Drug ineffective [Unknown]
  - Lymphoedema [Unknown]
  - Hepatic enzyme increased [Unknown]
  - Influenza [Unknown]

NARRATIVE: CASE EVENT DATE: 20201209
